FAERS Safety Report 12330267 (Version 1)
Quarter: 2016Q2

REPORT INFORMATION
  Report Type: Spontaneous
  Country: CN (occurrence: CN)
  Receive Date: 20160504
  Receipt Date: 20160504
  Transmission Date: 20160815
  Serious: Yes (Other)
  Sender: FDA-Public Use
  Company Number: CN-009507513-1605CHN001512

PATIENT
  Age: 36 Year
  Sex: Female

DRUGS (1)
  1. MARVELON [Suspect]
     Active Substance: DESOGESTREL\ETHINYL ESTRADIOL
     Dosage: UNK
     Route: 048

REACTIONS (4)
  - Uterine haemorrhage [Unknown]
  - Pregnancy on oral contraceptive [Recovered/Resolved]
  - Unintended pregnancy [Recovered/Resolved]
  - Caesarean section [Unknown]
